FAERS Safety Report 16409175 (Version 1)
Quarter: 2019Q2

REPORT INFORMATION
  Report Type: Report from Study
  Country: FR (occurrence: FR)
  Receive Date: 20190610
  Receipt Date: 20190610
  Transmission Date: 20190711
  Serious: Yes (Other)
  Sender: FDA-Public Use
  Company Number: FR-JAZZ-2019-FR-007830

PATIENT

DRUGS (2)
  1. DEFITELIO [Suspect]
     Active Substance: DEFIBROTIDE SODIUM
     Indication: PROPHYLAXIS
     Dosage: 25.4 MG/KG, QD
     Dates: start: 20161224
  2. DEFITELIO [Suspect]
     Active Substance: DEFIBROTIDE SODIUM
     Dosage: 25.4 MG/KG, QD
     Dates: end: 20170114

REACTIONS (3)
  - Off label use [Unknown]
  - Petechiae [Unknown]
  - Haemorrhagic cyst [Unknown]

NARRATIVE: CASE EVENT DATE: 20161224
